FAERS Safety Report 9402278 (Version 1)
Quarter: 2013Q3

REPORT INFORMATION
  Report Type: Spontaneous
  Country: US (occurrence: US)
  Receive Date: 20130716
  Receipt Date: 20130716
  Transmission Date: 20140515
  Serious: No
  Sender: FDA-Public Use
  Company Number: US-GLAXOSMITHKLINE-A1021789A

PATIENT
  Age: 71 Year
  Sex: Female

DRUGS (3)
  1. NICORETTE MINIS MINT 2 MG [Suspect]
     Indication: EX-TOBACCO USER
     Dates: start: 20130426, end: 20130426
  2. NICORETTE OTC 2MG [Suspect]
     Indication: EX-TOBACCO USER
  3. NICODERM CQ 14MG [Suspect]
     Indication: EX-TOBACCO USER

REACTIONS (10)
  - Hiccups [Recovered/Resolved]
  - Dyspepsia [Recovered/Resolved]
  - Burning sensation [Unknown]
  - Musculoskeletal chest pain [Unknown]
  - Product quality issue [Unknown]
  - Drug ineffective [Unknown]
  - Headache [Recovered/Resolved]
  - Lip dry [Recovered/Resolved]
  - Throat irritation [Unknown]
  - Dysgeusia [Unknown]
